FAERS Safety Report 6278179-9 (Version None)
Quarter: 2009Q3

REPORT INFORMATION
  Report Type: 
  Country: None (occurrence: None)
  Receive Date: 20090722
  Receipt Date: 20090715
  Transmission Date: 20100115
  Serious: Yes (Hospitalization)
  Sender: FDA-Public Use
  Company Number: CA-ASTRAZENECA-2009UW20320

PATIENT
  Age: 75 Year
  Sex: Female

DRUGS (5)
  1. NEXIUM [Suspect]
     Indication: DYSPEPSIA
     Route: 048
     Dates: end: 20080101
  2. NEXIUM [Suspect]
     Route: 048
     Dates: start: 20090601
  3. CRESTOR [Concomitant]
  4. PRILOSEC [Concomitant]
  5. NORVASC [Concomitant]
     Indication: HYPERTENSION

REACTIONS (6)
  - CHOKING [None]
  - DIVERTICULUM [None]
  - DYSPHAGIA [None]
  - DYSPNOEA [None]
  - NAUSEA [None]
  - POLYP [None]
